FAERS Safety Report 9419453 (Version 4)
Quarter: 2013Q3

REPORT INFORMATION
  Report Type: Spontaneous
  Country: JP (occurrence: JP)
  Receive Date: 20130725
  Receipt Date: 20130911
  Transmission Date: 20140515
  Serious: Yes (Hospitalization, Other)
  Sender: FDA-Public Use
  Company Number: JP-PFIZER INC-2013214467

PATIENT
  Age: 71 Year
  Sex: Female
  Weight: 44 kg

DRUGS (3)
  1. FOSPHENYTOIN SODIUM [Suspect]
     Indication: STATUS EPILEPTICUS
     Dosage: 15-18 MG/KG (0.2-0.24 MG/KG)
     Route: 041
     Dates: start: 20121210
  2. FOSPHENYTOIN SODIUM [Suspect]
     Dosage: 0.2 ML, UNK.
     Route: 041
     Dates: start: 20121211
  3. ZONISAMIDE [Concomitant]
     Indication: EPILEPSY
     Dosage: UNK

REACTIONS (3)
  - Acute hepatic failure [Recovered/Resolved]
  - Drug-induced liver injury [Recovering/Resolving]
  - Cerebral infarction [Recovered/Resolved with Sequelae]
